FAERS Safety Report 7311388-6 (Version None)
Quarter: 2011Q1

REPORT INFORMATION
  Report Type: 
  Country: None (occurrence: None)
  Receive Date: 20110224
  Receipt Date: 20110219
  Transmission Date: 20110831
  Serious: Yes (Other)
  Sender: FDA-Public Use
  Company Number: AT-PFIZER INC-2011011315

PATIENT
  Age: 40 Year
  Sex: Female

DRUGS (2)
  1. SAYANA [Suspect]
     Indication: OFF LABEL USE
     Dosage: UNK
  2. SAYANA [Suspect]
     Indication: MENSTRUAL DISCOMFORT

REACTIONS (2)
  - CONDITION AGGRAVATED [None]
  - AUTOIMMUNE THYROIDITIS [None]
